FAERS Safety Report 7649071-X (Version None)
Quarter: 2011Q3

REPORT INFORMATION
  Report Type: 
  Country: None (occurrence: None)
  Receive Date: 20110726
  Receipt Date: 20110715
  Transmission Date: 20111222
  Serious: Yes (Hospitalization, Other)
  Sender: FDA-Public Use
  Company Number: UCM201107-000032

PATIENT
  Age: 8 Year
  Sex: Male

DRUGS (1)
  1. TOPIRAMATE [Suspect]
     Indication: CONVULSION
     Dosage: 10 TABS OF 25MG TWICE DAILY (17.4 MG/KG), ORAL   10 TABS OF 50MG TWICE DAILY (34.4 MG/KG), ORAL
     Route: 048

REACTIONS (10)
  - OVERDOSE [None]
  - ABASIA [None]
  - LETHARGY [None]
  - MENINGISM [None]
  - ATAXIA [None]
  - HYPERREFLEXIA [None]
  - NAUSEA [None]
  - VOMITING [None]
  - SOMNOLENCE [None]
  - MUSCULOSKELETAL STIFFNESS [None]
